FAERS Safety Report 21094925 (Version 1)
Quarter: 2022Q3

REPORT INFORMATION
  Report Type: Spontaneous
  Country: US (occurrence: None)
  Receive Date: 20220715
  Receipt Date: 20220715
  Transmission Date: 20221027
  Serious: Yes (Other)
  Sender: FDA-Public Use
  Company Number: None

PATIENT
  Age: 87 Year
  Sex: Male

DRUGS (7)
  1. NUPLAZID [Suspect]
     Active Substance: PIMAVANSERIN TARTRATE
     Indication: Parkinson^s disease
     Dosage: FREQUENCY : DAILY;?
     Route: 048
     Dates: start: 20220708, end: 20220713
  2. ARICEPT [Concomitant]
     Active Substance: DONEPEZIL HYDROCHLORIDE
  3. SINEMET [Concomitant]
     Active Substance: CARBIDOPA\LEVODOPA
  4. FARXIGA [Concomitant]
     Active Substance: DAPAGLIFLOZIN PROPANEDIOL
  5. MIDODRINE [Concomitant]
     Active Substance: MIDODRINE
  6. TOUJEO [Concomitant]
     Active Substance: INSULIN GLARGINE
  7. Ptioglitazone [Concomitant]

REACTIONS (5)
  - Pruritus [None]
  - Formication [None]
  - Hallucination [None]
  - Screaming [None]
  - Condition aggravated [None]

NARRATIVE: CASE EVENT DATE: 20220713
